FAERS Safety Report 5683869-2 (Version None)
Quarter: 2008Q1

REPORT INFORMATION
  Report Type: 
  Country: None (occurrence: None)
  Receive Date: 20080326
  Receipt Date: 20080312
  Transmission Date: 20080703
  Serious: Yes (Hospitalization)
  Sender: FDA-Public Use
  Company Number: TCI2008A00827

PATIENT
  Age: 75 Year
  Sex: Male

DRUGS (4)
  1. ACTOS [Suspect]
     Dosage: (1 D) PER ORAL
     Route: 048
     Dates: start: 20060101
  2. DIOVAN [Concomitant]
  3. GLYBURIDE [Concomitant]
  4. IRON [Concomitant]

REACTIONS (4)
  - ANGINA PECTORIS [None]
  - OEDEMA [None]
  - OEDEMA PERIPHERAL [None]
  - WEIGHT INCREASED [None]
